FAERS Safety Report 9736617 (Version 1)
Quarter: 2013Q4

REPORT INFORMATION
  Report Type: Spontaneous
  Country: FR (occurrence: FR)
  Receive Date: 20131206
  Receipt Date: 20131206
  Transmission Date: 20140711
  Serious: Yes (Other)
  Sender: FDA-Public Use
  Company Number: FR-NOVOPROD-394186

PATIENT
  Age: 52 Year
  Sex: Male

DRUGS (10)
  1. NOVONORM [Suspect]
     Indication: DIABETES MELLITUS
     Dosage: ONE PHARMACEUTICAL DOSE DAILY
     Route: 048
     Dates: start: 200901
  2. NOVORAPID [Suspect]
     Indication: DIABETES MELLITUS
     Dosage: UNKNOWN
     Route: 058
     Dates: start: 200901
  3. LEVEMIR [Suspect]
     Indication: DIABETES MELLITUS
     Dosage: UNKNOWN
     Route: 058
     Dates: start: 200901
  4. PRAVADUAL [Suspect]
     Indication: PRODUCT USED FOR UNKNOWN INDICATION
     Dosage: UNKNOWN
     Route: 048
     Dates: start: 200901, end: 201301
  5. PRAVADUAL [Suspect]
     Dosage: UNKNOWN
     Route: 048
     Dates: start: 201309
  6. METFORMINE TEVA [Suspect]
     Indication: PRODUCT USED FOR UNKNOWN INDICATION
     Dosage: UNKNOWN
     Route: 048
     Dates: start: 200901
  7. RAMIPRIL BIOGARAN [Suspect]
     Indication: PRODUCT USED FOR UNKNOWN INDICATION
     Dosage: 10 MG, QD
     Route: 065
     Dates: start: 200901
  8. PROCORALAN [Suspect]
     Indication: PRODUCT USED FOR UNKNOWN INDICATION
     Dosage: 1 DF, QD (ONE PHARMACEUTICAL DOSE DAILY)
     Route: 048
     Dates: start: 200901
  9. EZETROL [Suspect]
     Indication: PRODUCT USED FOR UNKNOWN INDICATION
     Dosage: 10 MG, QD
     Route: 048
     Dates: end: 201309
  10. VERAPAMIL BIOGARAN [Suspect]
     Indication: PRODUCT USED FOR UNKNOWN INDICATION
     Dosage: UNKNOWN
     Route: 048
     Dates: start: 200901

REACTIONS (1)
  - Alopecia [Not Recovered/Not Resolved]
